FAERS Safety Report 6115833-3 (Version None)
Quarter: 2009Q1

REPORT INFORMATION
  Report Type: 
  Country: None (occurrence: None)
  Receive Date: 20090311
  Receipt Date: 20090226
  Transmission Date: 20090719
  Serious: Yes (Other)
  Sender: FDA-Public Use
  Company Number: 237575J08USA

PATIENT
  Age: 45 Year
  Sex: Female
  Weight: 91 kg

DRUGS (7)
  1. REBIF [Suspect]
     Indication: MULTIPLE SCLEROSIS
     Dosage: 44 MCG, 3 IN W EEKS, SUBCUTANEOUS,
     Route: 058
     Dates: start: 20080401, end: 20080807
  2. REBIF [Suspect]
     Indication: MULTIPLE SCLEROSIS
     Dosage: 44 MCG, 3 IN W EEKS, SUBCUTANEOUS,
     Route: 058
     Dates: start: 20081001, end: 20081001
  3. RITALIN [Suspect]
     Indication: FATIGUE
     Dosage: NOT REPORTED, 1 IN 1 DAYS, NOT REPORTED
     Dates: end: 20080801
  4. NORVASC [Concomitant]
  5. EFFEXOR XR [Concomitant]
  6. ZOCOR (ZOCOR CARDIO ASS) [Concomitant]
  7. MOTRIN [Concomitant]

REACTIONS (8)
  - ANXIETY [None]
  - CONVULSION [None]
  - FALL [None]
  - FATIGUE [None]
  - HEAD INJURY [None]
  - LOSS OF CONSCIOUSNESS [None]
  - NAUSEA [None]
  - SKIN LACERATION [None]
